FAERS Safety Report 4363981-0 (Version None)
Quarter: 2004Q2

REPORT INFORMATION
  Report Type: 
  Country: None (occurrence: None)
  Receive Date: 20040512
  Receipt Date: 20040423
  Transmission Date: 20050107
  Serious: Yes (Death)
  Sender: FDA-Public Use
  Company Number: 234824

PATIENT
  Age: 3 Week
  Sex: Female
  Weight: 3.1 kg

DRUGS (1)
  1. NOVOSEVEN [Suspect]
     Indication: POST PROCEDURAL HAEMORRHAGE
     Dosage: 90 UG/KG, SINGLE, INTRAVENOUS
     Route: 042
     Dates: start: 20031222, end: 20031222

REACTIONS (4)
  - MEDICAL DEVICE COMPLICATION [None]
  - OPERATIVE HAEMORRHAGE [None]
  - PROCEDURAL COMPLICATION [None]
  - THROMBOSIS [None]
